FAERS Safety Report 6062312-8 (Version None)
Quarter: 2009Q1

REPORT INFORMATION
  Report Type: 
  Country: None (occurrence: None)
  Receive Date: 20090203
  Receipt Date: 20090121
  Transmission Date: 20090719
  Serious: Yes (Death)
  Sender: FDA-Public Use
  Company Number: US-JNJFOC-20090106939

PATIENT
  Sex: Male
  Weight: 66.23 kg

DRUGS (3)
  1. FENTANYL-75 [Suspect]
     Indication: DRUG USE FOR UNKNOWN INDICATION
  2. COCAINE [Suspect]
     Indication: DRUG USE FOR UNKNOWN INDICATION
  3. ETHANOL [Concomitant]

REACTIONS (2)
  - ARTERIOSCLEROSIS [None]
  - DRUG TOXICITY [None]
